FAERS Safety Report 26207848 (Version 1)
Quarter: 2025Q4

REPORT INFORMATION
  Report Type: Report from Study
  Country: ZA (occurrence: ZA)
  Receive Date: 20251229
  Receipt Date: 20251229
  Transmission Date: 20260117
  Serious: Yes (Other)
  Sender: ROCHE
  Company Number: ZA-ROCHE-10000418149

PATIENT
  Age: 65 Year
  Sex: Male

DRUGS (4)
  1. VABYSMO [Suspect]
     Active Substance: FARICIMAB-SVOA
     Indication: Macular degeneration
     Dates: start: 20250916
  2. VABYSMO [Suspect]
     Active Substance: FARICIMAB-SVOA
  3. VABYSMO [Suspect]
     Active Substance: FARICIMAB-SVOA
  4. VABYSMO [Suspect]
     Active Substance: FARICIMAB-SVOA

REACTIONS (4)
  - Optical coherence tomography abnormal [Not Recovered/Not Resolved]
  - Visual acuity tests abnormal [Not Recovered/Not Resolved]
  - Off label use [Unknown]
  - Retinal thickening [Not Recovered/Not Resolved]

NARRATIVE: CASE EVENT DATE: 20251022
